FAERS Safety Report 7831289-4 (Version None)
Quarter: 2011Q4

REPORT INFORMATION
  Report Type: 
  Country: None (occurrence: None)
  Receive Date: 20111021
  Receipt Date: 20111014
  Transmission Date: 20120403
  Serious: Yes (Death)
  Sender: FDA-Public Use
  Company Number: IN-ROCHE-1005477

PATIENT
  Sex: Male

DRUGS (2)
  1. ACTIVASE [Suspect]
     Indication: ISCHAEMIC STROKE
     Dosage: (5 MG BOLUS + 45 MG PER HOUR)
     Route: 042
  2. HEPARIN [Concomitant]
     Indication: PRODUCT USED FOR UNKNOWN INDICATION

REACTIONS (1)
  - DEATH [None]
